FAERS Safety Report 10335522 (Version 2)
Quarter: 2014Q3

REPORT INFORMATION
  Report Type: Spontaneous
  Country: US (occurrence: US)
  Receive Date: 20140723
  Receipt Date: 20140723
  Transmission Date: 20150326
  Serious: No
  Sender: FDA-Public Use
  Company Number: US-UNITED THERAPEUTICS-UTC-046654

PATIENT
  Age: 53 Year
  Sex: Male
  Weight: 120.65 kg

DRUGS (2)
  1. REMODULIN [Suspect]
     Active Substance: TREPROSTINIL
     Dosage: 0.05 UG/KG/MIN
     Route: 058
     Dates: start: 20090327
  2. ADCIRCA [Concomitant]
     Active Substance: TADALAFIL

REACTIONS (8)
  - Device occlusion [Unknown]
  - Infusion site induration [Unknown]
  - Infusion site vesicles [Unknown]
  - Drug dose omission [Unknown]
  - Infusion site swelling [Unknown]
  - Injection site discharge [Unknown]
  - Infusion site erythema [Unknown]
  - Infusion site pain [Unknown]

NARRATIVE: CASE EVENT DATE: 20140413
